FAERS Safety Report 6809541-0 (Version None)
Quarter: 2010Q2

REPORT INFORMATION
  Report Type: 
  Country: None (occurrence: None)
  Receive Date: 20100630
  Receipt Date: 20100616
  Transmission Date: 20101027
  Serious: Yes (Other)
  Sender: FDA-Public Use
  Company Number: PHHY2010JP40607

PATIENT
  Age: 85 Year
  Sex: Female

DRUGS (3)
  1. DIOVAN [Suspect]
     Indication: HYPERTENSION
     Dosage: 80 MG, DAILY
     Route: 048
     Dates: start: 20100506, end: 20100610
  2. MEVALOTIN [Concomitant]
     Dosage: 5 MG, UNK
     Route: 048
     Dates: start: 20100506, end: 20100610
  3. AMLODIN [Concomitant]
     Dosage: 5 MG, UNK
     Route: 048
     Dates: start: 20100506, end: 20100610

REACTIONS (2)
  - GLAUCOMA SURGERY [None]
  - HYPERKALAEMIA [None]
